FAERS Safety Report 15362244 (Version 1)
Quarter: 2018Q3

REPORT INFORMATION
  Report Type: Spontaneous
  Country: US (occurrence: US)
  Receive Date: 20180831
  Receipt Date: 20180831
  Transmission Date: 20181010
  Serious: Yes (Hospitalization)
  Sender: FDA-Public Use
  Company Number: None

PATIENT
  Age: 30 Year
  Sex: Female

DRUGS (12)
  1. LORTAB [Concomitant]
     Active Substance: ACETAMINOPHEN\HYDROCODONE BITARTRATE
  2. NYSTATIN. [Concomitant]
     Active Substance: NYSTATIN
  3. SCOPOLAMINE [Concomitant]
     Active Substance: SCOPOLAMINE
  4. REGLAN [Concomitant]
     Active Substance: METOCLOPRAMIDE HYDROCHLORIDE
  5. ZOFRAN [Concomitant]
     Active Substance: ONDANSETRON HYDROCHLORIDE
  6. COLACE [Concomitant]
     Active Substance: DOCUSATE SODIUM
  7. PROLOSEC [Concomitant]
  8. GRANIX [Suspect]
     Active Substance: TBO-FILGRASTIM
     Route: 058
     Dates: start: 20180825
  9. GUAIFENESIN. [Concomitant]
     Active Substance: GUAIFENESIN
  10. KEFLEX [Concomitant]
     Active Substance: CEPHALEXIN
  11. MIRALAX [Concomitant]
     Active Substance: POLYETHYLENE GLYCOL 3350
  12. LEVOTHYROXIN [Concomitant]
     Active Substance: LEVOTHYROXINE

REACTIONS (1)
  - White blood cell count increased [None]

NARRATIVE: CASE EVENT DATE: 20180825
